FAERS Safety Report 21792960 (Version 1)
Quarter: 2022Q4

REPORT INFORMATION
  Report Type: Spontaneous
  Country: FR (occurrence: FR)
  Receive Date: 20221229
  Receipt Date: 20221229
  Transmission Date: 20230113
  Serious: Yes (Other)
  Sender: FDA-Public Use
  Company Number: FR-ALKEM LABORATORIES LIMITED-FR-ALKEM-2022-14184

PATIENT
  Age: 14 Month
  Sex: Female
  Weight: 2.55 kg

DRUGS (4)
  1. SIROLIMUS [Suspect]
     Active Substance: SIROLIMUS
     Indication: Hyperinsulinism
     Dosage: UNK, INITIAL DOSE OF 0.5-1 MG/SQ.M OF BODY SURFACE AREA PER DAY), SYRUP IN A CONCENTRATION OF 1 MG/M
     Route: 065
  2. SIROLIMUS [Suspect]
     Active Substance: SIROLIMUS
     Dosage: 1 MILLIGRAM/SQ. METER, QD (MAXIMAL DOSE) TROUGH LEVEL- 9.1-11.5 MICROG/L
     Route: 065
  3. OCTREOTIDE [Concomitant]
     Active Substance: OCTREOTIDE
     Indication: Hyperinsulinism
     Dosage: 11 MICROGRAM/KILOGRAM, QD
     Route: 065
  4. DEXTROSE [Concomitant]
     Active Substance: DEXTROSE
     Indication: Hyperinsulinism
     Dosage: 7.5 MILLIGRAM/KILOGRAM.MIN
     Route: 042

REACTIONS (6)
  - Neutropenia [Unknown]
  - Sepsis [Unknown]
  - Diarrhoea [Unknown]
  - Rash [Unknown]
  - Stomatitis [Unknown]
  - Drug ineffective for unapproved indication [Unknown]
